FAERS Safety Report 9084855 (Version 1)
Quarter: 2013Q1

REPORT INFORMATION
  Report Type: Spontaneous
  Country: US (occurrence: US)
  Receive Date: 20130131
  Receipt Date: 20130131
  Transmission Date: 20140127
  Serious: No
  Sender: FDA-Public Use
  Company Number: US-PFIZER INC-2013035009

PATIENT
  Age: 45 Year
  Sex: Female
  Weight: 62.13 kg

DRUGS (6)
  1. DEPO-PROVERA [Suspect]
     Indication: MENORRHAGIA
     Dosage: UNK, EVERY 3 MONTHS
     Route: 030
     Dates: start: 20121105
  2. GLEEVEC [Concomitant]
     Dosage: UNK
  3. CYMBALTA [Concomitant]
     Dosage: UNK
  4. LAMICTAL [Concomitant]
     Dosage: UNK
  5. VALTREX [Concomitant]
     Dosage: UNK
  6. TRAZODONE [Concomitant]
     Dosage: UNK

REACTIONS (1)
  - Alopecia [Not Recovered/Not Resolved]
